FAERS Safety Report 24891465 (Version 1)
Quarter: 2025Q1

REPORT INFORMATION
  Report Type: Spontaneous
  Country: US (occurrence: US)
  Receive Date: 20250127
  Receipt Date: 20250127
  Transmission Date: 20250409
  Serious: No
  Sender: PFIZER
  Company Number: US-PFIZER INC-202500017165

PATIENT
  Age: 30 Year
  Sex: Female

DRUGS (1)
  1. DEPO-MEDROL [Suspect]
     Active Substance: METHYLPREDNISOLONE ACETATE
     Indication: Bronchitis

REACTIONS (8)
  - Anxiety [Unknown]
  - Decreased appetite [Unknown]
  - Insomnia [Unknown]
  - Psychotic disorder [Unknown]
  - Hypersensitivity [Not Recovered/Not Resolved]
  - Depression [Unknown]
  - Mood swings [Unknown]
  - Off label use [Unknown]
